FAERS Safety Report 18234716 (Version 3)
Quarter: 2021Q1

REPORT INFORMATION
  Report Type: Spontaneous
  Country: FR (occurrence: FR)
  Receive Date: 20200904
  Receipt Date: 20210210
  Transmission Date: 20210419
  Serious: Yes (Death, Other)
  Sender: FDA-Public Use
  Company Number: FR-CELLTRION INC.-2020FR026261

PATIENT

DRUGS (1)
  1. RITUXIMAB (UNKNOWN) [Suspect]
     Active Substance: RITUXIMAB
     Indication: IDIOPATHIC INTERSTITIAL PNEUMONIA
     Dosage: 1000 MG (ON BOTH DAY 1 AND DAY 15)
     Route: 065

REACTIONS (8)
  - Condition aggravated [Fatal]
  - General physical condition abnormal [Fatal]
  - Respiratory symptom [Unknown]
  - Idiopathic interstitial pneumonia [Fatal]
  - Off label use [Unknown]
  - Therapeutic product effect variable [Unknown]
  - General physical health deterioration [Unknown]
  - Product use in unapproved indication [Unknown]
